FAERS Safety Report 4524469-7 (Version None)
Quarter: 2004Q4

REPORT INFORMATION
  Report Type: 
  Country: None (occurrence: None)
  Receive Date: 20041117
  Receipt Date: 20031229
  Transmission Date: 20050328
  Serious: Yes (Disabling)
  Sender: FDA-Public Use
  Company Number: US-JNJFOC-20030706001

PATIENT
  Age: 65 Year
  Sex: Female
  Weight: 73.4827 kg

DRUGS (4)
  1. LEVAQUIN [Suspect]
     Indication: SINUSITIS
     Dosage: 500 MG, 1 IN 1 DAY, ORAL
     Route: 048
     Dates: start: 20030703, end: 20030716
  2. ZYRTEC-D (CETIRIZINE HYDROCHLORIDE) [Concomitant]
  3. NASONEX [Concomitant]
  4. ADVAIR DISKUS (SERETIDE MITE) [Concomitant]

REACTIONS (1)
  - TENDONITIS [None]
